FAERS Safety Report 21449225 (Version 2)
Quarter: 2022Q4

REPORT INFORMATION
  Report Type: Spontaneous
  Country: US (occurrence: US)
  Receive Date: 20221013
  Receipt Date: 20221102
  Transmission Date: 20230113
  Serious: No
  Sender: FDA-Public Use
  Company Number: US-TAKEDA-2022TUS071365

PATIENT
  Sex: Male
  Weight: 20 kg

DRUGS (2)
  1. VYVANSE [Suspect]
     Active Substance: LISDEXAMFETAMINE DIMESYLATE
     Indication: Attention deficit hyperactivity disorder
     Dosage: 20 MILLIGRAM, QD
     Route: 048
     Dates: start: 202104
  2. CLARITIN [Concomitant]
     Active Substance: LORATADINE
     Indication: Multiple allergies

REACTIONS (6)
  - Drug ineffective [Unknown]
  - Therapeutic response shortened [Unknown]
  - Anger [Unknown]
  - Product use issue [Unknown]
  - Product physical issue [Recovered/Resolved]
  - Wrong technique in product usage process [Unknown]
